FAERS Safety Report 11534287 (Version 4)
Quarter: 2015Q4

REPORT INFORMATION
  Report Type: Report from Study
  Country: US (occurrence: US)
  Receive Date: 20150922
  Receipt Date: 20151014
  Transmission Date: 20160304
  Serious: No
  Sender: FDA-Public Use
  Company Number: PHEH2015US017642

PATIENT
  Sex: Female
  Weight: 68.27 kg

DRUGS (1)
  1. GILENYA [Suspect]
     Active Substance: FINGOLIMOD HYDROCHLORIDE
     Indication: MULTIPLE SCLEROSIS
     Dosage: 0.5 MG, QD
     Route: 048
     Dates: start: 20150622

REACTIONS (16)
  - Memory impairment [Unknown]
  - Temperature intolerance [Unknown]
  - Drug ineffective [Unknown]
  - Balance disorder [Unknown]
  - Weight decreased [Unknown]
  - Chest discomfort [Unknown]
  - Headache [Unknown]
  - Alopecia [Not Recovered/Not Resolved]
  - Menorrhagia [Not Recovered/Not Resolved]
  - Diarrhoea [Unknown]
  - Drug intolerance [Unknown]
  - Dizziness [Unknown]
  - Eye irritation [Unknown]
  - Chest pain [Unknown]
  - Somnolence [Unknown]
  - Pollakiuria [Unknown]
